FAERS Safety Report 10329858 (Version 9)
Quarter: 2014Q4

REPORT INFORMATION
  Report Type: Report from Study
  Country: ES (occurrence: ES)
  Receive Date: 20140721
  Receipt Date: 20141107
  Transmission Date: 20150528
  Serious: Yes (Hospitalization)
  Sender: FDA-Public Use
  Company Number: ES-009507513-1404ESP006276

PATIENT
  Age: 46 Year
  Sex: Male
  Weight: 73 kg

DRUGS (15)
  1. ASPIRIN. [Concomitant]
     Active Substance: ASPIRIN
     Indication: THROMBOSIS PROPHYLAXIS
     Dosage: TOTAL DAILY DOSE 100 MG EVERY DAY
     Route: 048
     Dates: start: 20140312
  2. DEXAMETHASONE. [Suspect]
     Active Substance: DEXAMETHASONE
     Indication: PLASMA CELL MYELOMA
     Dosage: 40 MG, DOSED ON DAYS 1,8,15 AND 22 OF EACH 28-DAY CYCLE
     Route: 048
     Dates: start: 20140312, end: 20140326
  3. PREDNISONE. [Concomitant]
     Active Substance: PREDNISONE
     Indication: PRURITUS
     Dosage: TOTAL DAILY DOSE 30 MG, EVERY DAY, FORMULATION: PILL
     Route: 048
     Dates: start: 20140317, end: 20140321
  4. LENALIDOMIDE [Suspect]
     Active Substance: LENALIDOMIDE
     Indication: PLASMA CELL MYELOMA
     Dosage: 25 MG, QD, DOSED ON DAYS 1-21 OF EACH 28-DAY CYCLE
     Route: 048
     Dates: start: 20140312, end: 20140401
  5. LACTULOSE. [Concomitant]
     Active Substance: LACTULOSE
     Indication: CONSTIPATION
     Dosage: TOTAL DAILY DOSE 5 ML, BID
     Route: 048
     Dates: start: 20140402
  6. CIPROFLOXACIN. [Concomitant]
     Active Substance: CIPROFLOXACIN
     Indication: INFECTION PROPHYLAXIS
     Dosage: 500 MG, BID, FORMULATION: PILL
     Route: 048
     Dates: start: 20140312
  7. PEMBROLIZUMAB. [Suspect]
     Active Substance: PEMBROLIZUMAB
     Indication: PLASMA CELL MYELOMA
     Dosage: 2 MG/KG, QOW, OF DAYS 1 AND 15 OF EACH 28-DAY CYCLE
     Route: 042
     Dates: start: 20140312, end: 20140312
  8. LENALIDOMIDE [Suspect]
     Active Substance: LENALIDOMIDE
     Dosage: 25 MG, QD, DOSED ON DAYS 1-21 OF EACH 28-DAY CYCLE
     Route: 048
     Dates: start: 20140416
  9. ALLOPURINOL. [Concomitant]
     Active Substance: ALLOPURINOL
     Indication: HYPERURICAEMIA
     Dosage: 300 MG EVERY DAY,FORMULATION PILL
     Route: 048
     Dates: start: 20140402
  10. CLOBETASOL PROPIONATE. [Concomitant]
     Active Substance: CLOBETASOL PROPIONATE
     Indication: PRURITUS
     Dosage: TOTAL DAILY DOSE: 1 APPLICATION, BID
     Route: 061
     Dates: start: 20140317, end: 20140326
  11. MAGNESIUM HYDROXIDE. [Concomitant]
     Active Substance: MAGNESIUM HYDROXIDE
     Indication: CONSTIPATION
     Dosage: TOTAL DAILY DOSE 10 ML, BID
     Route: 048
     Dates: start: 20140402
  12. DEXAMETHASONE. [Suspect]
     Active Substance: DEXAMETHASONE
     Dosage: 40 MG, DOSED ON DAYS 1,8,15 AND 22 OF EACH 28-DAY CYCLE
     Route: 042
     Dates: start: 20140416
  13. PEMBROLIZUMAB. [Suspect]
     Active Substance: PEMBROLIZUMAB
     Dosage: 2 MG/KG, QOW, OF DAYS 1 AND 15 OF EACH 28-DAY CYCLE
     Route: 042
     Dates: start: 20140326, end: 20140326
  14. PEMBROLIZUMAB. [Suspect]
     Active Substance: PEMBROLIZUMAB
     Dosage: 2 MG/KG, QOW, OF DAYS 1 AND 15 OF EACH 28-DAY CYCLE
     Route: 042
     Dates: start: 20140416
  15. DEXAMETHASONE. [Suspect]
     Active Substance: DEXAMETHASONE
     Dosage: 40 MG, DOSED ON DAYS 1,8,15 AND 22 OF EACH 28-DAY CYCLE
     Route: 048
     Dates: start: 20140402, end: 20140402

REACTIONS (2)
  - Tumour lysis syndrome [Recovered/Resolved]
  - Renal failure [Recovered/Resolved]

NARRATIVE: CASE EVENT DATE: 20140404
